FAERS Safety Report 17464125 (Version 2)
Quarter: 2020Q2

REPORT INFORMATION
  Report Type: Spontaneous
  Country: US (occurrence: US)
  Receive Date: 20200226
  Receipt Date: 20200602
  Transmission Date: 20200713
  Serious: Yes (Other)
  Sender: FDA-Public Use
  Company Number: US-BAYER-2020-031735

PATIENT
  Sex: Male

DRUGS (2)
  1. KOGENATE FS [Suspect]
     Active Substance: ANTIHEMOPHILIC FACTOR, HUMAN RECOMBINANT
     Indication: FACTOR VIII DEFICIENCY
     Dosage: 3000 PROPHYLAXIS
     Route: 042
     Dates: start: 20200120
  2. KOGENATE FS [Suspect]
     Active Substance: ANTIHEMOPHILIC FACTOR, HUMAN RECOMBINANT
     Indication: PROPHYLAXIS
     Dosage: 3000 U, TIW
     Route: 042
     Dates: start: 20200125

REACTIONS (3)
  - Haemarthrosis [None]
  - Haemoptysis [None]
  - Coccidioidomycosis [None]
